FAERS Safety Report 17895712 (Version 1)
Quarter: 2020Q2

REPORT INFORMATION
  Report Type: Spontaneous
  Country: US (occurrence: US)
  Receive Date: 20200615
  Receipt Date: 20200615
  Transmission Date: 20200714
  Serious: No
  Sender: FDA-Public Use
  Company Number: None

PATIENT
  Age: 55 Year
  Sex: Male
  Weight: 123.75 kg

DRUGS (14)
  1. SEROQUEL [Concomitant]
     Active Substance: QUETIAPINE FUMARATE
  2. SPIRONOLACTONE. [Concomitant]
     Active Substance: SPIRONOLACTONE
  3. ABILIFY [Concomitant]
     Active Substance: ARIPIPRAZOLE
  4. LASIX [Concomitant]
     Active Substance: FUROSEMIDE
  5. ZOFRAN [Concomitant]
     Active Substance: ONDANSETRON HYDROCHLORIDE
  6. OXYCODONE [Concomitant]
     Active Substance: OXYCODONE
  7. CLOMIPRAMINE [Concomitant]
     Active Substance: CLOMIPRAMINE
  8. SPRYCEL [Suspect]
     Active Substance: DASATINIB
     Indication: CHRONIC MYELOID LEUKAEMIA
     Route: 048
     Dates: start: 20200514, end: 20200615
  9. CYMBALTA [Concomitant]
     Active Substance: DULOXETINE HYDROCHLORIDE
  10. TOPAMAX [Concomitant]
     Active Substance: TOPIRAMATE
  11. CEPHALEXIN. [Concomitant]
     Active Substance: CEPHALEXIN
  12. MAGOX [Concomitant]
  13. KCL [Concomitant]
     Active Substance: POTASSIUM CHLORIDE
  14. LACTULOSE. [Concomitant]
     Active Substance: LACTULOSE

REACTIONS (2)
  - Peripheral swelling [None]
  - Migraine [None]

NARRATIVE: CASE EVENT DATE: 20200615
